FAERS Safety Report 8306960-0 (Version None)
Quarter: 2012Q2

REPORT INFORMATION
  Report Type: 
  Country: None (occurrence: None)
  Receive Date: 20120424
  Receipt Date: 20120412
  Transmission Date: 20120825
  Serious: No
  Sender: FDA-Public Use
  Company Number: US-JNJFOC-20120405854

PATIENT

DRUGS (1)
  1. DURAGESIC-100 [Suspect]
     Indication: PRODUCT USED FOR UNKNOWN INDICATION
     Dosage: NDC 50458-0094-05
     Route: 062
     Dates: start: 20120319

REACTIONS (1)
  - DRUG PRESCRIBING ERROR [None]
